FAERS Safety Report 4428502-2 (Version None)
Quarter: 2004Q3

REPORT INFORMATION
  Report Type: 
  Country: None (occurrence: None)
  Receive Date: 20040816
  Receipt Date: 20040805
  Transmission Date: 20050211
  Serious: Yes (Hospitalization)
  Sender: FDA-Public Use
  Company Number: CIP04001712

PATIENT
  Sex: Female

DRUGS (5)
  1. ACTONEL [Suspect]
     Dosage: 35 MG ONCE WEEKLY, ORAL
     Route: 048
  2. ACTONEL [Suspect]
     Dosage: 5 MG DAILY, ORAL
     Route: 048
  3. CALCIUM [Concomitant]
  4. TENORMIN [Concomitant]
  5. SYNTHROID [Concomitant]

REACTIONS (3)
  - BLOOD URINE [None]
  - HEART VALVE CALCIFICATION [None]
  - RENAL CELL CARCINOMA STAGE UNSPECIFIED [None]
